FAERS Safety Report 14712136 (Version 3)
Quarter: 2019Q1

REPORT INFORMATION
  Report Type: Spontaneous
  Country: US (occurrence: US)
  Receive Date: 20180404
  Receipt Date: 20190212
  Transmission Date: 20190417
  Serious: Yes (Other)
  Sender: FDA-Public Use
  Company Number: US-SA-2017SA080641

PATIENT
  Age: 60 Year
  Sex: Male

DRUGS (1)
  1. ALLEGRA ALLERGY [Suspect]
     Active Substance: FEXOFENADINE HYDROCHLORIDE
     Indication: HYPERSENSITIVITY
     Dosage: 2 DF,UNK
     Route: 065

REACTIONS (6)
  - Macular degeneration [Unknown]
  - Somnolence [Unknown]
  - Extra dose administered [Unknown]
  - Blindness [Unknown]
  - Visual impairment [Unknown]
  - Condition aggravated [Unknown]
